FAERS Safety Report 14878602 (Version 1)
Quarter: 2018Q2

REPORT INFORMATION
  Report Type: Spontaneous
  Country: CA (occurrence: CA)
  Receive Date: 20180511
  Receipt Date: 20180511
  Transmission Date: 20180711
  Serious: Yes (Other)
  Sender: FDA-Public Use
  Company Number: CA-IPSEN BIOPHARMACEUTICALS, INC.-2018-06715

PATIENT
  Age: 70 Year
  Sex: Female

DRUGS (3)
  1. ONIVYDE [Suspect]
     Active Substance: IRINOTECAN HYDROCHLORIDE
     Indication: CHEMOTHERAPY
     Dosage: NOT REPORTED
     Route: 065
  2. OXALIPLATIN. [Suspect]
     Active Substance: OXALIPLATIN
     Indication: CHEMOTHERAPY
  3. FLUOROURACIL. [Suspect]
     Active Substance: FLUOROURACIL
     Indication: CHEMOTHERAPY

REACTIONS (2)
  - Bone marrow failure [Recovered/Resolved]
  - Peripheral sensory neuropathy [Recovered/Resolved]
